FAERS Safety Report 5224536-9 (Version None)
Quarter: 2007Q1

REPORT INFORMATION
  Report Type: 
  Country: None (occurrence: None)
  Receive Date: 20070130
  Receipt Date: 20070119
  Transmission Date: 20070707
  Serious: Yes (Other)
  Sender: FDA-Public Use
  Company Number: US-PFIZER INC-2007006696

PATIENT
  Sex: Female
  Weight: 58.1 kg

DRUGS (3)
  1. DETROL LA [Suspect]
     Indication: BLADDER SPASM
  2. CALCIUM [Concomitant]
  3. MAGNESIUM [Concomitant]

REACTIONS (2)
  - DRY MOUTH [None]
  - SURGERY [None]
